FAERS Safety Report 6441883-3 (Version None)
Quarter: 2009Q4

REPORT INFORMATION
  Report Type: 
  Country: None (occurrence: None)
  Receive Date: 20091113
  Receipt Date: 20091113
  Transmission Date: 20100525
  Serious: No
  Sender: FDA-Public Use
  Company Number: None

PATIENT
  Age: 62 Year
  Sex: Male
  Weight: 105.23 kg

DRUGS (1)
  1. DOXYCYCLINE [Suspect]
     Indication: ROSACEA
     Dosage: 100 MG BID PO
     Route: 048
     Dates: start: 20090513, end: 20090526

REACTIONS (2)
  - OEDEMA MOUTH [None]
  - SWOLLEN TONGUE [None]
